FAERS Safety Report 6930057-5 (Version None)
Quarter: 2010Q3

REPORT INFORMATION
  Report Type: 
  Country: None (occurrence: None)
  Receive Date: 20100818
  Receipt Date: 20100810
  Transmission Date: 20110219
  Serious: Yes (Hospitalization)
  Sender: FDA-Public Use
  Company Number: FR-SANOFI-AVENTIS-2010SA047206

PATIENT
  Age: 66 Year
  Sex: Female

DRUGS (4)
  1. LANTUS [Suspect]
     Indication: INTENTIONAL OVERDOSE
     Route: 058
     Dates: start: 20100806, end: 20100806
  2. LANTUS [Suspect]
     Route: 058
     Dates: start: 20100806, end: 20100806
  3. LANTUS [Suspect]
     Route: 058
     Dates: end: 20100806
  4. LANTUS [Suspect]
     Route: 058
     Dates: end: 20100806

REACTIONS (1)
  - INTENTIONAL OVERDOSE [None]
